FAERS Safety Report 6251401-0 (Version None)
Quarter: 2009Q2

REPORT INFORMATION
  Report Type: 
  Country: None (occurrence: None)
  Receive Date: 20090630
  Receipt Date: 20090626
  Transmission Date: 20091009
  Serious: Yes (Death)
  Sender: FDA-Public Use
  Company Number: PHEH2009US06793

PATIENT
  Sex: Male

DRUGS (2)
  1. GLEEVEC [Suspect]
     Indication: NEOPLASM
     Dosage: 400 MG, QD
     Dates: start: 20090112, end: 20090409
  2. CODEINE [Concomitant]

REACTIONS (1)
  - DEATH [None]
